FAERS Safety Report 22600817 (Version 1)
Quarter: 2023Q2

REPORT INFORMATION
  Report Type: Spontaneous
  Country: CN (occurrence: CN)
  Receive Date: 20230614
  Receipt Date: 20230614
  Transmission Date: 20230722
  Serious: Yes (Other)
  Sender: FDA-Public Use
  Company Number: CN-SUN PHARMACEUTICAL INDUSTRIES LTD-2023R1-392008

PATIENT
  Age: 75 Year
  Sex: Male

DRUGS (6)
  1. METHYLPREDNISOLONE [Suspect]
     Active Substance: METHYLPREDNISOLONE
     Indication: Pneumonia
     Dosage: 40 MILLIGRAM, QD
     Route: 065
  2. PREDNISONE [Suspect]
     Active Substance: PREDNISONE
     Indication: Bronchitis
     Dosage: UNK
     Route: 048
  3. AMINOPHYLLINE [Concomitant]
     Active Substance: AMINOPHYLLINE
     Indication: Bronchitis
     Dosage: UNK
     Route: 065
  4. cefpazone [Concomitant]
     Indication: Pneumonia
     Dosage: 3.0 GRAM, Q8H
     Route: 065
  5. LEVOFLOXACIN [Concomitant]
     Active Substance: LEVOFLOXACIN
     Indication: Pneumonia
     Dosage: 0.5 GRAM, QD
     Route: 065
  6. SULBACTAM [Concomitant]
     Active Substance: SULBACTAM
     Indication: Pneumonia
     Dosage: 3.0 GRAM, Q8H
     Route: 065

REACTIONS (1)
  - Disseminated strongyloidiasis [Unknown]
